FAERS Safety Report 6783877-4 (Version None)
Quarter: 2010Q2

REPORT INFORMATION
  Report Type: 
  Country: None (occurrence: None)
  Receive Date: 20100622
  Receipt Date: 20100611
  Transmission Date: 20101027
  Serious: Yes (Other)
  Sender: FDA-Public Use
  Company Number: CN-PFIZER INC-2010073623

PATIENT
  Age: 9 Year
  Sex: Female
  Weight: 31 kg

DRUGS (4)
  1. ZITHROMAX [Suspect]
     Indication: UPPER RESPIRATORY TRACT INFECTION
     Dosage: 0.25 G, 1X/DAY
     Route: 042
  2. VITAMIN B6 [Concomitant]
     Indication: PROPHYLAXIS
     Dosage: 0.1 G, 1X/DAY
  3. MUCOSOLVAN [Concomitant]
     Dosage: 15 MG, 2X/DAY
     Route: 048
  4. GELOMYRTOL FORTE [Concomitant]
     Dosage: 0.12 G, 3X/DAY
     Route: 048

REACTIONS (1)
  - PHLEBITIS SUPERFICIAL [None]
